FAERS Safety Report 11397309 (Version 3)
Quarter: 2015Q3

REPORT INFORMATION
  Report Type: Report from Study
  Country: IL (occurrence: IL)
  Receive Date: 20150819
  Receipt Date: 20150908
  Transmission Date: 20151125
  Serious: Yes (Death, Life-Threatening, Hospitalization, Other)
  Sender: FDA-Public Use
  Company Number: IL-BRISTOL-MYERS SQUIBB COMPANY-BMS-2015-052704

PATIENT
  Sex: Male

DRUGS (3)
  1. FUSID                              /00032601/ [Concomitant]
     Indication: PRODUCT USED FOR UNKNOWN INDICATION
     Route: 065
  2. NIVOLUMAB [Suspect]
     Active Substance: NIVOLUMAB
     Indication: NON-SMALL CELL LUNG CANCER
     Dosage: 270 MG, Q2WK
     Route: 042
     Dates: start: 20150603, end: 20150618
  3. LAXADINE                           /00061602/ [Concomitant]
     Indication: PRODUCT USED FOR UNKNOWN INDICATION
     Route: 065

REACTIONS (3)
  - Acute respiratory distress syndrome [Fatal]
  - Respiratory failure [Fatal]
  - Pneumonitis [Fatal]
